FAERS Safety Report 5084186-4 (Version None)
Quarter: 2006Q3

REPORT INFORMATION
  Report Type: 
  Country: None (occurrence: None)
  Receive Date: 20060821
  Receipt Date: 20050629
  Transmission Date: 20061208
  Serious: No
  Sender: FDA-Public Use
  Company Number: US-BRISTOL-MYERS SQUIBB COMPANY-13020243

PATIENT
  Sex: Female

DRUGS (2)
  1. TEQUIN [Suspect]
     Indication: SINUSITIS
     Dosage: TAKEN FOR 3 DAYS THEN DISCONTINUED, RESTARTED THEN DISCONTINUED ON 29-JUN-2005
     Dates: end: 20050629
  2. TEQUIN [Suspect]
     Indication: SWELLING FACE
     Dosage: TAKEN FOR 3 DAYS THEN DISCONTINUED, RESTARTED THEN DISCONTINUED ON 29-JUN-2005
     Dates: end: 20050629

REACTIONS (2)
  - COUGH [None]
  - POLLAKIURIA [None]
